FAERS Safety Report 9214955 (Version 3)
Quarter: 2013Q3

REPORT INFORMATION
  Report Type: Spontaneous
  Country: JP (occurrence: JP)
  Receive Date: 20130405
  Receipt Date: 20130729
  Transmission Date: 20140515
  Serious: Yes (Hospitalization)
  Sender: FDA-Public Use
  Company Number: JP-GLAXOSMITHKLINE-B0879575A

PATIENT
  Age: 49 Year
  Sex: Female

DRUGS (9)
  1. PAXIL [Suspect]
     Indication: DEPRESSION
     Dosage: 20MG PER DAY
     Route: 048
     Dates: start: 20080818, end: 20080829
  2. PAXIL [Suspect]
     Indication: DEPRESSION
     Dosage: 30MG PER DAY
     Route: 048
     Dates: start: 20080830, end: 20090222
  3. JZOLOFT [Concomitant]
     Indication: DEPRESSED MOOD
     Dosage: 50MG PER DAY
     Route: 048
     Dates: start: 20070927, end: 20071010
  4. JZOLOFT [Concomitant]
     Indication: DEPRESSED MOOD
     Route: 048
     Dates: start: 20071011, end: 20090417
  5. MYSLEE [Concomitant]
     Indication: INSOMNIA
     Route: 048
     Dates: start: 20071027, end: 20090515
  6. LENDORMIN D [Concomitant]
     Indication: INSOMNIA
     Route: 048
     Dates: start: 20071027, end: 20090515
  7. WYPAX [Concomitant]
     Indication: ANXIETY
     Dosage: .5MG THREE TIMES PER DAY
     Route: 048
     Dates: start: 20080105, end: 20090515
  8. AMOXAN [Concomitant]
     Indication: DEPRESSED MOOD
     Route: 048
     Dates: start: 20080126, end: 20090306
  9. MAGLAX [Concomitant]
     Indication: CONSTIPATION
     Route: 048
     Dates: start: 20080210, end: 20081128

REACTIONS (5)
  - Drug-induced liver injury [Unknown]
  - Diarrhoea [Recovered/Resolved]
  - Nausea [Recovered/Resolved]
  - Upper respiratory tract inflammation [Unknown]
  - Myalgia [Unknown]
